FAERS Safety Report 11368952 (Version 2)
Quarter: 2015Q3

REPORT INFORMATION
  Report Type: Report from Study
  Country: SI (occurrence: SI)
  Receive Date: 20150812
  Receipt Date: 20150924
  Transmission Date: 20151125
  Serious: Yes (Other)
  Sender: FDA-Public Use
  Company Number: SI-BAYER-2015-393147

PATIENT
  Age: 53 Year
  Sex: Male

DRUGS (3)
  1. AMLOPIN [Concomitant]
     Active Substance: AMLODIPINE BESYLATE
     Dosage: 10 MG, OM
  2. NEXAVAR [Suspect]
     Active Substance: SORAFENIB
     Indication: RENAL CELL CARCINOMA
     Dosage: 400 MG, BID
     Route: 048
     Dates: start: 20140808, end: 20150826
  3. CARDURA XL [Concomitant]
     Active Substance: DOXAZOSIN MESYLATE
     Dosage: 4 MG, HS

REACTIONS (4)
  - Skin wound [Recovered/Resolved]
  - Metastases to lymph nodes [None]
  - Metastases to the mediastinum [None]
  - Renal cancer [None]
